FAERS Safety Report 6691984-X (Version None)
Quarter: 2010Q2

REPORT INFORMATION
  Report Type: 
  Country: None (occurrence: None)
  Receive Date: 20100422
  Receipt Date: 20100414
  Transmission Date: 20101027
  Serious: Yes (Other)
  Sender: FDA-Public Use
  Company Number: BR-ROCHE-697696

PATIENT
  Sex: Female
  Weight: 82 kg

DRUGS (4)
  1. XENICAL [Suspect]
     Indication: WEIGHT CONTROL
     Route: 048
     Dates: start: 20060101, end: 20090101
  2. VEROTINA [Concomitant]
     Indication: SEDATION
     Dates: end: 20090101
  3. PARLODEL [Concomitant]
  4. CABERGOLINE [Concomitant]

REACTIONS (2)
  - BLOOD GLUCOSE ABNORMAL [None]
  - BLOOD PROLACTIN ABNORMAL [None]
